FAERS Safety Report 4364476-0 (Version None)
Quarter: 2004Q2

REPORT INFORMATION
  Report Type: 
  Country: None (occurrence: None)
  Receive Date: 20040525
  Receipt Date: 20040519
  Transmission Date: 20050107
  Serious: Yes (Other)
  Sender: FDA-Public Use
  Company Number: DK-GLAXOSMITHKLINE-B0333380A

PATIENT
  Age: 48 Year
  Sex: Male

DRUGS (1)
  1. SEROXAT [Suspect]
     Indication: ANXIETY
     Dosage: 20MG UNKNOWN
     Route: 048
     Dates: start: 20010410

REACTIONS (5)
  - ANXIETY [None]
  - DRUG DEPENDENCE [None]
  - HYPERHIDROSIS [None]
  - NERVOUSNESS [None]
  - PALPITATIONS [None]
